FAERS Safety Report 19446970 (Version 1)
Quarter: 2021Q2

REPORT INFORMATION
  Report Type: Spontaneous
  Country: US (occurrence: US)
  Receive Date: 20210621
  Receipt Date: 20210621
  Transmission Date: 20210717
  Serious: No
  Sender: FDA-Public Use
  Company Number: None

PATIENT
  Age: 72 Year
  Sex: Male

DRUGS (1)
  1. CLINDAMYCIN  (CLINDAMYCIN  HCL 150MG CAP) [Suspect]
     Active Substance: CLINDAMYCIN
     Indication: TOOTH INFECTION
     Route: 048
     Dates: start: 20210211, end: 20210313

REACTIONS (7)
  - Pruritus [None]
  - Acute kidney injury [None]
  - Blood urea increased [None]
  - Hypotension [None]
  - Urticaria [None]
  - Blood creatinine increased [None]
  - Stevens-Johnson syndrome [None]

NARRATIVE: CASE EVENT DATE: 20210309
